FAERS Safety Report 10153481 (Version 1)
Quarter: 2014Q2

REPORT INFORMATION
  Report Type: Spontaneous
  Country: FR (occurrence: FR)
  Receive Date: 20140505
  Receipt Date: 20140505
  Transmission Date: 20141212
  Serious: Yes (Hospitalization)
  Sender: FDA-Public Use
  Company Number: PHHY2014FR051070

PATIENT
  Age: 78 Year
  Sex: Female

DRUGS (1)
  1. VOLTARENE LP [Suspect]
     Indication: ARTHRITIS
     Dosage: 2 DF, QD
     Route: 048
     Dates: start: 20140307, end: 20140331

REACTIONS (2)
  - Colitis ischaemic [Recovered/Resolved]
  - Rectal haemorrhage [Unknown]
